FAERS Safety Report 4378363-5 (Version None)
Quarter: 2004Q2

REPORT INFORMATION
  Report Type: 
  Country: None (occurrence: None)
  Receive Date: 20040616
  Receipt Date: 20040607
  Transmission Date: 20050107
  Serious: Yes (Death)
  Sender: FDA-Public Use
  Company Number: PHBS2004AT07515

PATIENT
  Age: 63 Year
  Sex: Male

DRUGS (3)
  1. VOLTAREN [Suspect]
     Indication: PAIN
     Dosage: 75 MG/DAY
     Route: 042
  2. NOVALGIN [Concomitant]
  3. SIRDALUD [Concomitant]

REACTIONS (8)
  - BLOOD CREATINE PHOSPHOKINASE INCREASED [None]
  - BLOOD LACTATE DEHYDROGENASE INCREASED [None]
  - CARDIAC ARREST [None]
  - CARDIAC FAILURE [None]
  - DRUG INEFFECTIVE [None]
  - GENERAL PHYSICAL HEALTH DETERIORATION [None]
  - RENAL FAILURE ACUTE [None]
  - RHABDOMYOLYSIS [None]
